FAERS Safety Report 23755011 (Version 1)
Quarter: 2024Q2

REPORT INFORMATION
  Report Type: Report from Study
  Country: FR (occurrence: FR)
  Receive Date: 20240418
  Receipt Date: 20240418
  Transmission Date: 20240716
  Serious: Yes (Life-Threatening, Hospitalization)
  Sender: FDA-Public Use
  Company Number: FR-ABBVIE-5722794

PATIENT
  Age: 74 Year
  Sex: Male

DRUGS (13)
  1. RISANKIZUMAB [Suspect]
     Active Substance: RISANKIZUMAB
     Indication: Psoriasis
     Dosage: LAST ADMINISTRATION DATE: 2021
     Route: 058
     Dates: start: 20211001
  2. RISANKIZUMAB [Suspect]
     Active Substance: RISANKIZUMAB
     Route: 058
     Dates: start: 20211004, end: 20211103
  3. RISANKIZUMAB [Suspect]
     Active Substance: RISANKIZUMAB
     Route: 058
     Dates: start: 20211104, end: 20240111
  4. RISANKIZUMAB [Suspect]
     Active Substance: RISANKIZUMAB
     Dosage: LAST ADMINISTRATION DATE: 2024
     Route: 058
     Dates: start: 20240116
  5. ONDANSETRON [Concomitant]
     Active Substance: ONDANSETRON
     Indication: Prophylaxis of nausea and vomiting
     Route: 048
     Dates: start: 20240111, end: 20240111
  6. TADALAFIL [Concomitant]
     Active Substance: TADALAFIL
     Indication: Erectile dysfunction
     Dosage: 5 MILLIGRAM
     Route: 048
     Dates: start: 2022
  7. KETAMINE [Concomitant]
     Active Substance: KETAMINE
     Indication: Sedation
     Route: 042
     Dates: start: 20240111, end: 20240111
  8. SILODOSIN [Concomitant]
     Active Substance: SILODOSIN
     Indication: Micturition disorder
     Dosage: 8 MILLIGRAM
     Route: 048
     Dates: start: 20231031
  9. ACETAMINOPHEN [Concomitant]
     Active Substance: ACETAMINOPHEN
     Indication: Pain
     Route: 042
     Dates: start: 20240111, end: 20240111
  10. MIDAZOLAM [Concomitant]
     Active Substance: MIDAZOLAM
     Indication: Sedation
     Route: 042
     Dates: start: 20240111, end: 20240111
  11. MORPHINE HYDROCHLORIDE [Concomitant]
     Active Substance: MORPHINE HYDROCHLORIDE
     Indication: Pain
     Route: 042
     Dates: start: 20240111, end: 20240111
  12. CEFTRIAXONE [Concomitant]
     Active Substance: CEFTRIAXONE\CEFTRIAXONE SODIUM
     Indication: Infection prophylaxis
     Dosage: 1 GRAM
     Route: 042
     Dates: start: 20240111, end: 20240111
  13. NEFOPAM [Concomitant]
     Active Substance: NEFOPAM
     Indication: Pain
     Dosage: FREQUENCY TEXT: BY DAY
     Route: 042
     Dates: start: 20240111, end: 20240111

REACTIONS (1)
  - Hepatocellular carcinoma [Not Recovered/Not Resolved]

NARRATIVE: CASE EVENT DATE: 20231121
